FAERS Safety Report 15981106 (Version 1)
Quarter: 2019Q1

REPORT INFORMATION
  Report Type: Spontaneous
  Country: US (occurrence: US)
  Receive Date: 20190219
  Receipt Date: 20190219
  Transmission Date: 20190418
  Serious: No
  Sender: FDA-Public Use
  Company Number: US-SUNOVION-2019SUN000676

PATIENT
  Sex: Female

DRUGS (5)
  1. LONHALA MAGNAIR [Suspect]
     Active Substance: GLYCOPYRROLATE
     Indication: CHRONIC RESPIRATORY FAILURE
     Dosage: 25MCG/1ML
     Route: 055
     Dates: start: 20190211
  2. LONHALA MAGNAIR [Suspect]
     Active Substance: GLYCOPYRROLATE
     Indication: HYPOXIA
     Dosage: 25MCG/1ML
     Route: 055
     Dates: start: 20190211
  3. POTASSIUM [Concomitant]
     Active Substance: POTASSIUM
     Dosage: UNK
  4. AZO [Concomitant]
     Active Substance: PHENAZOPYRIDINE HYDROCHLORIDE
     Dosage: UNK
  5. LASIX [Concomitant]
     Active Substance: FUROSEMIDE
     Dosage: UNK

REACTIONS (4)
  - Joint swelling [Unknown]
  - Nasopharyngitis [Unknown]
  - Off label use [Unknown]
  - Micturition disorder [Unknown]
